FAERS Safety Report 26094331 (Version 2)
Quarter: 2025Q4

REPORT INFORMATION
  Report Type: Spontaneous
  Country: EU (occurrence: EU)
  Receive Date: 20251126
  Receipt Date: 20251202
  Transmission Date: 20260118
  Serious: Yes (Other)
  Sender: MYLAN
  Company Number: None

PATIENT
  Age: 30 Year
  Sex: Male
  Weight: 86 kg

DRUGS (28)
  1. PAROXETINE [Suspect]
     Active Substance: PAROXETINE
     Indication: Mental disorder
     Dosage: 50 MILLIGRAM, QD
     Dates: start: 202411
  2. PAROXETINE [Suspect]
     Active Substance: PAROXETINE
     Dosage: 50 MILLIGRAM, QD
     Route: 048
     Dates: start: 202411
  3. PAROXETINE [Suspect]
     Active Substance: PAROXETINE
     Dosage: 50 MILLIGRAM, QD
     Route: 048
     Dates: start: 202411
  4. PAROXETINE [Suspect]
     Active Substance: PAROXETINE
     Dosage: 50 MILLIGRAM, QD
     Dates: start: 202411
  5. QUETIAPINE [Suspect]
     Active Substance: QUETIAPINE
     Indication: Mental disorder
     Dosage: 100 MILLIGRAM, QD
  6. QUETIAPINE [Suspect]
     Active Substance: QUETIAPINE
     Dosage: 100 MILLIGRAM, QD
     Route: 048
  7. QUETIAPINE [Suspect]
     Active Substance: QUETIAPINE
     Dosage: 100 MILLIGRAM, QD
     Route: 048
  8. QUETIAPINE [Suspect]
     Active Substance: QUETIAPINE
     Dosage: 100 MILLIGRAM, QD
  9. CYAMEMAZINE [Suspect]
     Active Substance: CYAMEMAZINE
     Indication: Product used for unknown indication
     Dosage: 350 MILLIGRAM, QD, SCORED FILM COATED TABLET
     Dates: start: 20250804
  10. CYAMEMAZINE [Suspect]
     Active Substance: CYAMEMAZINE
     Dosage: 350 MILLIGRAM, QD, SCORED FILM COATED TABLET
     Route: 048
     Dates: start: 20250804
  11. CYAMEMAZINE [Suspect]
     Active Substance: CYAMEMAZINE
     Dosage: 350 MILLIGRAM, QD, SCORED FILM COATED TABLET
     Route: 048
     Dates: start: 20250804
  12. CYAMEMAZINE [Suspect]
     Active Substance: CYAMEMAZINE
     Dosage: 350 MILLIGRAM, QD, SCORED FILM COATED TABLET
     Dates: start: 20250804
  13. RILPIVIRINE [Suspect]
     Active Substance: RILPIVIRINE
     Indication: Product used for unknown indication
     Dosage: UNK
  14. RILPIVIRINE [Suspect]
     Active Substance: RILPIVIRINE
     Dosage: UNK
     Route: 065
  15. RILPIVIRINE [Suspect]
     Active Substance: RILPIVIRINE
     Dosage: UNK
     Route: 065
  16. RILPIVIRINE [Suspect]
     Active Substance: RILPIVIRINE
     Dosage: UNK
  17. PRAZEPAM [Concomitant]
     Active Substance: PRAZEPAM
     Dosage: UNK
  18. PRAZEPAM [Concomitant]
     Active Substance: PRAZEPAM
     Dosage: UNK
     Route: 065
  19. PRAZEPAM [Concomitant]
     Active Substance: PRAZEPAM
     Dosage: UNK
     Route: 065
  20. PRAZEPAM [Concomitant]
     Active Substance: PRAZEPAM
     Dosage: UNK
  21. DESLORATADINE [Concomitant]
     Active Substance: DESLORATADINE
     Dosage: UNK
  22. DESLORATADINE [Concomitant]
     Active Substance: DESLORATADINE
     Dosage: UNK
     Route: 065
  23. DESLORATADINE [Concomitant]
     Active Substance: DESLORATADINE
     Dosage: UNK
     Route: 065
  24. DESLORATADINE [Concomitant]
     Active Substance: DESLORATADINE
     Dosage: UNK
  25. VOCABRIA [Concomitant]
     Active Substance: CABOTEGRAVIR SODIUM
     Dosage: UNK
  26. VOCABRIA [Concomitant]
     Active Substance: CABOTEGRAVIR SODIUM
     Dosage: UNK
     Route: 065
  27. VOCABRIA [Concomitant]
     Active Substance: CABOTEGRAVIR SODIUM
     Dosage: UNK
     Route: 065
  28. VOCABRIA [Concomitant]
     Active Substance: CABOTEGRAVIR SODIUM
     Dosage: UNK

REACTIONS (2)
  - Enuresis [Not Recovered/Not Resolved]
  - Polyuria [Not Recovered/Not Resolved]

NARRATIVE: CASE EVENT DATE: 20241201
